FAERS Safety Report 8600267 (Version 2)
Quarter: 2013Q2

REPORT INFORMATION
  Report Type: Spontaneous
  Country: US (occurrence: US)
  Receive Date: 20120606
  Receipt Date: 20130617
  Transmission Date: 20140414
  Serious: Yes (Disabling, Other)
  Sender: FDA-Public Use
  Company Number: US-ASTRAZENECA-2012SE35067

PATIENT
  Sex: Female

DRUGS (6)
  1. NEXIUM [Suspect]
     Indication: GASTROOESOPHAGEAL REFLUX DISEASE
     Route: 048
  2. NEXIUM [Suspect]
     Indication: GASTROOESOPHAGEAL REFLUX DISEASE
     Dosage: 1 A DAY
     Route: 048
  3. ROLAIDS [Concomitant]
  4. VALIUM [Concomitant]
  5. VITAMINE D [Concomitant]
  6. ADVIL [Concomitant]

REACTIONS (9)
  - Neoplasm malignant [Unknown]
  - Depression [Unknown]
  - Osteoporosis [Unknown]
  - Arthritis [Unknown]
  - Multiple fractures [Unknown]
  - Patella fracture [Unknown]
  - Joint injury [Unknown]
  - Lower limb fracture [Unknown]
  - Vitamin D deficiency [Unknown]
